FAERS Safety Report 23510071 (Version 1)
Quarter: 2024Q1

REPORT INFORMATION
  Report Type: Spontaneous
  Country: US (occurrence: US)
  Receive Date: 20240211
  Receipt Date: 20240211
  Transmission Date: 20240410
  Serious: No
  Sender: FDA-Public Use
  Company Number: US-SA-SAC20240205001419

PATIENT

DRUGS (3)
  1. ENJAYMO [Suspect]
     Active Substance: SUTIMLIMAB-JOME
     Indication: Cold type haemolytic anaemia
     Dosage: UNK UNK, Q3W
     Route: 041
  2. ENJAYMO [Suspect]
     Active Substance: SUTIMLIMAB-JOME
     Dosage: UNK, Q4W
     Route: 041
  3. ENJAYMO [Suspect]
     Active Substance: SUTIMLIMAB-JOME
     Dosage: UNK UNK, Q3W
     Route: 041

REACTIONS (1)
  - Off label use [Unknown]
